FAERS Safety Report 5326926-2 (Version None)
Quarter: 2007Q2

REPORT INFORMATION
  Report Type: 
  Country: None (occurrence: None)
  Receive Date: 20070511
  Receipt Date: 20070501
  Transmission Date: 20071010
  Serious: Yes (Other)
  Sender: FDA-Public Use
  Company Number: B0469902A

PATIENT
  Sex: Female

DRUGS (3)
  1. SALBUTAMOL SULPHATE INFUSION (ALBUTEROL SULFATE) (GENERIC) [Suspect]
     Indication: PREMATURE LABOUR
     Dosage: INTRAVENOUS
     Route: 042
  2. DEXTROSE [Concomitant]
  3. SODIUM CHLORIDE [Concomitant]

REACTIONS (1)
  - MYOCARDIAL ISCHAEMIA [None]
